FAERS Safety Report 16161610 (Version 1)
Quarter: 2019Q2

REPORT INFORMATION
  Report Type: Report from Study
  Country: DE (occurrence: DE)
  Receive Date: 20190405
  Receipt Date: 20190405
  Transmission Date: 20190711
  Serious: Yes (Death, Hospitalization, Other)
  Sender: FDA-Public Use
  Company Number: DE-ACTELION-A-CH2019-188346

PATIENT
  Age: 78 Year
  Sex: Female
  Weight: 62 kg

DRUGS (20)
  1. CODEINE [Concomitant]
     Active Substance: CODEINE
     Indication: COUGH
     Dosage: UNK
     Route: 048
     Dates: start: 20190211, end: 20190222
  2. CLEXANE [Concomitant]
     Active Substance: ENOXAPARIN SODIUM
     Indication: PROPHYLAXIS
     Dosage: UNK
     Route: 058
     Dates: start: 20190205, end: 20190222
  3. CLEXANE [Concomitant]
     Active Substance: ENOXAPARIN SODIUM
     Dosage: UNK
     Route: 058
     Dates: start: 20190309, end: 20190321
  4. RAMIPRIL. [Concomitant]
     Active Substance: RAMIPRIL
     Indication: HYPERTENSION
     Dosage: UNK
     Route: 048
     Dates: start: 2017, end: 20190311
  5. TAVOR [Concomitant]
     Indication: PROPHYLAXIS
     Dosage: UNK
     Route: 048
     Dates: start: 20190310, end: 20190310
  6. CONCOR [Concomitant]
     Active Substance: BISOPROLOL FUMARATE
     Indication: HYPERTENSION
     Dosage: UNK
     Route: 048
     Dates: start: 2017, end: 20190321
  7. XIPAMIDE [Concomitant]
     Active Substance: XIPAMIDE
     Indication: RESPIRATORY FAILURE
     Dosage: UNK
     Route: 042
     Dates: start: 20190322, end: 20190322
  8. SPIRIVA [Concomitant]
     Active Substance: TIOTROPIUM BROMIDE MONOHYDRATE
     Indication: DYSPNOEA
     Dosage: UNK
     Route: 055
     Dates: start: 2018, end: 20190311
  9. RANITIDINE. [Concomitant]
     Active Substance: RANITIDINE
     Indication: PROPHYLAXIS
     Dosage: UNK
     Route: 048
     Dates: start: 20190307, end: 20190307
  10. ADCIRCA [Concomitant]
     Active Substance: TADALAFIL
     Indication: PULMONARY ARTERIAL HYPERTENSION
     Dosage: 20 MG, QD
     Route: 048
     Dates: start: 20190213, end: 20190215
  11. OXYGEN. [Concomitant]
     Active Substance: OXYGEN
     Indication: HYPOXIA
     Dosage: UNK
     Route: 055
     Dates: start: 201811, end: 20190323
  12. IPRATROPIUM BROMIDE. [Concomitant]
     Active Substance: IPRATROPIUM BROMIDE
     Indication: PROPHYLAXIS
     Dosage: UNK
     Route: 055
     Dates: start: 20190311, end: 20190321
  13. AMLODIPIN [Concomitant]
     Active Substance: AMLODIPINE BESYLATE
     Indication: HYPERTENSION
     Dosage: UNK
     Route: 048
     Dates: start: 20190317, end: 20190321
  14. OPSUMIT [Suspect]
     Active Substance: MACITENTAN
     Indication: PULMONARY ARTERIAL HYPERTENSION
     Dosage: 10 MG, QD
     Route: 048
     Dates: start: 20190221, end: 20190322
  15. TORASEMIDE [Concomitant]
     Active Substance: TORSEMIDE
     Indication: PULMONARY ARTERIAL HYPERTENSION
     Dosage: UNK
     Route: 048
     Dates: start: 20190206, end: 20190310
  16. NEXIUM [Concomitant]
     Active Substance: ESOMEPRAZOLE MAGNESIUM
     Indication: PROPHYLAXIS
     Dosage: UNK
     Route: 048
     Dates: start: 20190313, end: 20190322
  17. ADCIRCA [Concomitant]
     Active Substance: TADALAFIL
     Dosage: 40 MG, QD
     Route: 048
     Dates: start: 20190215, end: 20190322
  18. XIPAMIDE [Concomitant]
     Active Substance: XIPAMIDE
     Indication: PULMONARY ARTERIAL HYPERTENSION
     Dosage: UNK
     Route: 048
     Dates: start: 20190220, end: 20190221
  19. TRAMAL LONG [Concomitant]
     Active Substance: TRAMADOL
     Indication: RHEUMATOID ARTHRITIS
     Dosage: UNK
     Dates: start: 1990, end: 20190322
  20. EBRANTIL [Concomitant]
     Active Substance: URAPIDIL
     Indication: HYPERTENSION
     Dosage: UNK
     Route: 042
     Dates: start: 20190316, end: 20190316

REACTIONS (7)
  - Lung lobectomy [Unknown]
  - Transfusion [Unknown]
  - Renal impairment [Not Recovered/Not Resolved]
  - Metastases to pleura [Unknown]
  - Pleural effusion [Unknown]
  - Respiratory failure [Fatal]
  - Pleurectomy [Unknown]

NARRATIVE: CASE EVENT DATE: 20190221
